FAERS Safety Report 7001457-2 (Version None)
Quarter: 2010Q3

REPORT INFORMATION
  Report Type: 
  Country: None (occurrence: None)
  Receive Date: 20100920
  Receipt Date: 20100218
  Transmission Date: 20110219
  Serious: No
  Sender: FDA-Public Use
  Company Number: US-ASTRAZENECA-2010SE07395

PATIENT
  Sex: Male

DRUGS (2)
  1. SEROQUEL [Suspect]
     Indication: BIPOLAR DISORDER
     Route: 048
     Dates: start: 20100211
  2. LITHIUM [Concomitant]

REACTIONS (3)
  - DISTURBANCE IN SEXUAL AROUSAL [None]
  - FATIGUE [None]
  - INCREASED APPETITE [None]
